FAERS Safety Report 5433413-X (Version None)
Quarter: 2007Q3

REPORT INFORMATION
  Report Type: 
  Country: None (occurrence: None)
  Receive Date: 20070828
  Receipt Date: 20070828
  Transmission Date: 20080115
  Serious: No
  Sender: FDA-Public Use
  Company Number: None

PATIENT
  Age: 69 Year
  Sex: Male

DRUGS (1)
  1. PACLITAXEL [Suspect]
     Indication: NON-SMALL CELL LUNG CANCER
     Dosage: 100MG ONCE IV
     Route: 042
     Dates: start: 20070827, end: 20070827

REACTIONS (2)
  - BRONCHOSPASM [None]
  - DYSPNOEA [None]
